FAERS Safety Report 20919508 (Version 1)
Quarter: 2022Q2

REPORT INFORMATION
  Report Type: Spontaneous
  Country: US (occurrence: US)
  Receive Date: 20220606
  Receipt Date: 20220606
  Transmission Date: 20220721
  Serious: Yes (Hospitalization)
  Sender: FDA-Public Use
  Company Number: US-HORIZON THERAPEUTICS-HZN-2022-003936

PATIENT

DRUGS (4)
  1. BUPHENYL [Suspect]
     Active Substance: SODIUM PHENYLBUTYRATE
     Indication: Urea cycle disorder
     Dosage: UNK
     Route: 048
  2. BUPHENYL [Suspect]
     Active Substance: SODIUM PHENYLBUTYRATE
     Indication: Ornithine transcarbamoylase deficiency
  3. RAVICTI [Suspect]
     Active Substance: GLYCEROL PHENYLBUTYRATE
     Indication: Urea cycle disorder
     Dosage: UNK
     Route: 048
  4. RAVICTI [Suspect]
     Active Substance: GLYCEROL PHENYLBUTYRATE
     Indication: Ornithine transcarbamoylase deficiency

REACTIONS (5)
  - Product dose omission issue [Unknown]
  - Dysphagia [Recovered/Resolved]
  - Product taste abnormal [Recovered/Resolved]
  - Skin odour abnormal [Recovered/Resolved]
  - Wrong technique in product usage process [Recovered/Resolved]
